FAERS Safety Report 4288128-0 (Version None)
Quarter: 2004Q1

REPORT INFORMATION
  Report Type: 
  Country: None (occurrence: None)
  Receive Date: 20040205
  Receipt Date: 20040127
  Transmission Date: 20041129
  Serious: Yes (Hospitalization)
  Sender: FDA-Public Use
  Company Number: 2004-01-1605

PATIENT
  Age: 13 Month
  Sex: Female

DRUGS (2)
  1. CELESTONE [Suspect]
     Indication: URTICARIA
     Dosage: ORAL
     Route: 048
     Dates: start: 20031208, end: 20031209
  2. POLARAMINE [Concomitant]

REACTIONS (1)
  - STAPHYLOCOCCAL SCALDED SKIN SYNDROME [None]
